FAERS Safety Report 8417332-2 (Version None)
Quarter: 2012Q2

REPORT INFORMATION
  Report Type: 
  Country: None (occurrence: None)
  Receive Date: 20120606
  Receipt Date: 20120523
  Transmission Date: 20120825
  Serious: No
  Sender: FDA-Public Use
  Company Number: US-BAYER-2012-055940

PATIENT
  Age: 39 Year
  Sex: Male

DRUGS (2)
  1. AVELOX [Suspect]
     Indication: SINUSITIS
     Dosage: 400 MG, ONCE
     Route: 048
     Dates: start: 20120321, end: 20120404
  2. KLONOPIN [Concomitant]
     Indication: ANXIETY

REACTIONS (3)
  - MYALGIA [None]
  - TENDON PAIN [None]
  - ARTHRALGIA [None]
